FAERS Safety Report 21570379 (Version 1)
Quarter: 2022Q4

REPORT INFORMATION
  Report Type: Report from Study
  Country: US (occurrence: US)
  Receive Date: 20221109
  Receipt Date: 20221109
  Transmission Date: 20230112
  Serious: Yes (Other)
  Sender: FDA-Public Use
  Company Number: US-ABBVIE-22K-163-4512764-00

PATIENT
  Age: 33 Year
  Sex: Female
  Weight: 70.306 kg

DRUGS (5)
  1. HUMIRA [Suspect]
     Active Substance: ADALIMUMAB
     Indication: Hidradenitis
     Route: 058
     Dates: start: 202112, end: 202206
  2. HUMIRA [Suspect]
     Active Substance: ADALIMUMAB
     Route: 058
  3. IBUPROFEN [Concomitant]
     Active Substance: IBUPROFEN
     Indication: Hidradenitis
  4. COVID-19 VACCINE NRVV AD26 [Concomitant]
     Indication: COVID-19 immunisation
     Dosage: TIME INTERVAL: 1 TOTAL: 1ST DOSE
     Route: 030
     Dates: start: 202004, end: 202004
  5. COVID-19 VACCINE NRVV AD26 [Concomitant]
     Indication: COVID-19 immunisation
     Dosage: TIME INTERVAL: TOTAL: 3RD DOSE
     Route: 030
     Dates: start: 202112, end: 202112

REACTIONS (12)
  - Cholesteatoma [Recovered/Resolved]
  - Ear pain [Recovering/Resolving]
  - Surgery [Unknown]
  - Drug ineffective [Not Recovered/Not Resolved]
  - Ear haemorrhage [Recovered/Resolved]
  - Immunodeficiency [Recovering/Resolving]
  - Gingivitis [Not Recovered/Not Resolved]
  - Ear infection [Recovering/Resolving]
  - Tooth infection [Recovered/Resolved]
  - Gingivitis [Recovered/Resolved]
  - Hidradenitis [Recovering/Resolving]
  - Tooth infection [Not Recovered/Not Resolved]

NARRATIVE: CASE EVENT DATE: 20211201
